FAERS Safety Report 16337647 (Version 1)
Quarter: 2019Q2

REPORT INFORMATION
  Report Type: Report from Study
  Country: ES (occurrence: ES)
  Receive Date: 20190521
  Receipt Date: 20190521
  Transmission Date: 20190711
  Serious: Yes (Hospitalization)
  Sender: FDA-Public Use
  Company Number: ES-CELGENEUS-ESP-20190504297

PATIENT
  Age: 81 Year
  Sex: Male

DRUGS (3)
  1. AZACITIDINE. [Suspect]
     Active Substance: AZACITIDINE
     Indication: ACUTE MYELOID LEUKAEMIA
     Dosage: UNKNOWN
     Route: 065
  2. CYTARABINE. [Suspect]
     Active Substance: CYTARABINE
     Indication: ACUTE MYELOID LEUKAEMIA
     Dosage: LOW DOSE
     Route: 041
     Dates: start: 20181113, end: 20181114
  3. FLUDARABINE [Suspect]
     Active Substance: FLUDARABINE PHOSPHATE
     Indication: ACUTE MYELOID LEUKAEMIA
     Route: 041
     Dates: start: 20181113, end: 20181114

REACTIONS (3)
  - Dyspnoea [Recovering/Resolving]
  - Disorientation [Recovering/Resolving]
  - Oliguria [Recovering/Resolving]

NARRATIVE: CASE EVENT DATE: 20181128
